FAERS Safety Report 18589994 (Version 1)
Quarter: 2020Q4

REPORT INFORMATION
  Report Type: Spontaneous
  Country: US (occurrence: US)
  Receive Date: 20201207
  Receipt Date: 20201207
  Transmission Date: 20210114
  Serious: Yes (Hospitalization)
  Sender: FDA-Public Use
  Company Number: None

PATIENT
  Age: 49 Year
  Sex: Female

DRUGS (1)
  1. ENTYVIO [Suspect]
     Active Substance: VEDOLIZUMAB
     Indication: CROHN^S DISEASE
     Dosage: ?          OTHER STRENGTH:300MG/VL ;OTHER FREQUENCY:EVERY 8 WEEKS ;?
     Route: 042
     Dates: start: 20170601

REACTIONS (1)
  - Pulmonary mass [None]

NARRATIVE: CASE EVENT DATE: 20201120
